FAERS Safety Report 13694780 (Version 1)
Quarter: 2017Q2

REPORT INFORMATION
  Report Type: Spontaneous
  Country: DE (occurrence: DE)
  Receive Date: 20170627
  Receipt Date: 20170627
  Transmission Date: 20170830
  Serious: Yes (Other)
  Sender: FDA-Public Use
  Company Number: GXKR2017DE003301

PATIENT

DRUGS (4)
  1. NALPAIN [Concomitant]
     Indication: LABOUR PAIN
     Route: 042
     Dates: start: 20170507, end: 20170507
  2. METHYLDOPA. [Concomitant]
     Active Substance: METHYLDOPA
     Indication: HYPERTENSION
     Dosage: 250 MG, TID
     Route: 048
     Dates: start: 20170207, end: 20170507
  3. MEPTID [Concomitant]
     Active Substance: MEPTAZINOL HYDROCHLORIDE
     Indication: LABOUR PAIN
     Route: 042
     Dates: start: 20170507, end: 20170507
  4. VALSARTAN. [Suspect]
     Active Substance: VALSARTAN
     Indication: HYPERTENSION
     Dosage: 160 MG, QD
     Route: 048
     Dates: start: 20160827, end: 20170206

REACTIONS (1)
  - Oligohydramnios [Recovered/Resolved]
